FAERS Safety Report 9475691 (Version 1)
Quarter: 2013Q3

REPORT INFORMATION
  Report Type: Spontaneous
  Country: US (occurrence: None)
  Receive Date: 20130821
  Receipt Date: 20130821
  Transmission Date: 20140515
  Serious: Yes (Hospitalization, Other)
  Sender: FDA-Public Use
  Company Number: CL-513-2013

PATIENT
  Age: 77 Year
  Sex: Male

DRUGS (2)
  1. NOREPINEPHRINE BITARTRATE [Suspect]
     Indication: CARDIAC FAILURE
     Dosage: INFUSION
     Dates: start: 20130806, end: 20130806
  2. NOREPINEPHRINE BITARTRATE [Suspect]
     Indication: HYPOTENSION
     Dosage: INFUSION
     Dates: start: 20130806, end: 20130806

REACTIONS (1)
  - Therapeutic response decreased [None]
